FAERS Safety Report 5069615-4 (Version None)
Quarter: 2006Q3

REPORT INFORMATION
  Report Type: 
  Country: None (occurrence: None)
  Receive Date: 20060803
  Receipt Date: 20060727
  Transmission Date: 20061208
  Serious: Yes (Hospitalization)
  Sender: FDA-Public Use
  Company Number: AU-BRISTOL-MYERS SQUIBB COMPANY-13456579

PATIENT
  Age: 72 Year
  Sex: Female

DRUGS (4)
  1. ETOPOPHOS [Suspect]
     Indication: LUNG NEOPLASM MALIGNANT
     Route: 042
     Dates: start: 20030410, end: 20030430
  2. CISPLATIN [Suspect]
     Indication: LUNG NEOPLASM MALIGNANT
     Route: 042
     Dates: start: 20030410, end: 20030430
  3. DEXAMETHASONE TAB [Suspect]
     Indication: VOMITING
     Route: 042
     Dates: start: 20030410, end: 20030430
  4. DEXAMETHASONE TAB [Suspect]
     Route: 042
     Dates: start: 20030410, end: 20030430

REACTIONS (1)
  - HYPERGLYCAEMIA [None]
